FAERS Safety Report 4641093-6 (Version None)
Quarter: 2005Q2

REPORT INFORMATION
  Report Type: 
  Country: None (occurrence: None)
  Receive Date: 20050419
  Receipt Date: 20050419
  Transmission Date: 20051028
  Serious: Yes (Death)
  Sender: FDA-Public Use
  Company Number: None

PATIENT
  Age: 63 Year
  Sex: Female
  Weight: 48 kg

DRUGS (2)
  1. POTASSIUM CHLORIDE [Suspect]
     Indication: CARDIAC DISORDER
     Dosage: 120 MEQ PO DAILY
     Route: 048
  2. POTASSIUM CHLORIDE [Suspect]
     Indication: HEART TRANSPLANT
     Dosage: 120 MEQ PO DAILY
     Route: 048

REACTIONS (2)
  - BLOOD POTASSIUM INCREASED [None]
  - TREATMENT NONCOMPLIANCE [None]
